FAERS Safety Report 7006628-7 (Version None)
Quarter: 2010Q3

REPORT INFORMATION
  Report Type: 
  Country: None (occurrence: None)
  Receive Date: 20100921
  Receipt Date: 20100921
  Transmission Date: 20110219
  Serious: No
  Sender: FDA-Public Use
  Company Number: None

PATIENT
  Age: 36 Year
  Sex: Female

DRUGS (1)
  1. FENTANYL [Suspect]
     Dosage: APPLY 1 PATCH EVERY 48 HOURS
     Dates: start: 20100915

REACTIONS (2)
  - BLISTER [None]
  - DRUG HYPERSENSITIVITY [None]
